FAERS Safety Report 6827584-8 (Version None)
Quarter: 2010Q3

REPORT INFORMATION
  Report Type: 
  Country: None (occurrence: None)
  Receive Date: 20100709
  Receipt Date: 20070118
  Transmission Date: 20110219
  Serious: No
  Sender: FDA-Public Use
  Company Number: US-PFIZER INC-2007005934

PATIENT
  Sex: Female
  Weight: 65.77 kg

DRUGS (5)
  1. CHANTIX [Suspect]
     Indication: SMOKING CESSATION THERAPY
     Dates: start: 20061222, end: 20070101
  2. CLINDAMYCIN HYDROCHLORIDE [Suspect]
     Indication: LUNG INFECTION
     Dates: start: 20061214, end: 20061221
  3. WARFARIN [Concomitant]
  4. VERAPAMIL [Concomitant]
  5. DIGOXIN [Concomitant]

REACTIONS (2)
  - NAUSEA [None]
  - WEIGHT DECREASED [None]
